FAERS Safety Report 12876672 (Version 1)
Quarter: 2016Q4

REPORT INFORMATION
  Report Type: Spontaneous
  Country: US (occurrence: US)
  Receive Date: 20161021
  Receipt Date: 20161021
  Transmission Date: 20170207
  Serious: Yes (Death)
  Sender: FDA-Public Use
  Company Number: None

PATIENT
  Age: 57 Year
  Sex: Male
  Weight: 113.6 kg

DRUGS (1)
  1. WARFARIN [Suspect]
     Active Substance: WARFARIN
     Indication: ATRIAL FIBRILLATION
     Route: 048
     Dates: start: 20160812, end: 20160824

REACTIONS (7)
  - International normalised ratio increased [None]
  - Nausea [None]
  - Haematemesis [None]
  - Abdominal pain [None]
  - Haemorrhage [None]
  - Gastric haemorrhage [None]
  - Vomiting [None]

NARRATIVE: CASE EVENT DATE: 20160829
